FAERS Safety Report 6815612-5 (Version None)
Quarter: 2010Q3

REPORT INFORMATION
  Report Type: 
  Country: None (occurrence: None)
  Receive Date: 20100702
  Receipt Date: 20100624
  Transmission Date: 20110219
  Serious: Yes (Hospitalization)
  Sender: FDA-Public Use
  Company Number: GB-ABBOTT-10P-167-0653752-00

PATIENT
  Age: 65 Year
  Sex: Female

DRUGS (2)
  1. HUMIRA [Suspect]
     Indication: PRODUCT USED FOR UNKNOWN INDICATION
     Dates: end: 20100201
  2. HUMIRA [Suspect]
     Dates: start: 20100301, end: 20100401

REACTIONS (4)
  - BLOOD TEST ABNORMAL [None]
  - PANCYTOPENIA [None]
  - PYREXIA [None]
  - SPLENIC LESION [None]
